FAERS Safety Report 10227013 (Version 2)
Quarter: 2014Q2

REPORT INFORMATION
  Report Type: Spontaneous
  Country: US (occurrence: US)
  Receive Date: 20140610
  Receipt Date: 20140611
  Transmission Date: 20141212
  Serious: Yes (Hospitalization, Other)
  Sender: FDA-Public Use
  Company Number: US-ROCHE-1415988

PATIENT
  Sex: Female

DRUGS (4)
  1. PERJETA [Suspect]
     Indication: HER-2 POSITIVE BREAST CANCER
     Dosage: FIRST LINE SETTING
     Route: 065
  2. HERCEPTIN [Suspect]
     Indication: HER-2 POSITIVE BREAST CANCER
     Dosage: FIRST LINE SETTING
     Route: 065
  3. TAXOTERE [Concomitant]
     Indication: HER-2 POSITIVE BREAST CANCER
     Dosage: FIRST LINE SETTING
     Route: 065
  4. AUGMENTIN [Concomitant]

REACTIONS (5)
  - Stevens-Johnson syndrome [Unknown]
  - Blood bilirubin increased [Recovering/Resolving]
  - Jaundice [Unknown]
  - Leukopenia [Unknown]
  - Malaise [Unknown]
